FAERS Safety Report 5908018-4 (Version None)
Quarter: 2008Q4

REPORT INFORMATION
  Report Type: 
  Country: None (occurrence: None)
  Receive Date: 20081003
  Receipt Date: 20081001
  Transmission Date: 20090506
  Serious: Yes (Hospitalization)
  Sender: FDA-Public Use
  Company Number: BR-B.I. PHARMACEUTICALS,INC./RIDGEFIELD-2008-BR-00099BR

PATIENT
  Age: 57 Year
  Sex: Female

DRUGS (4)
  1. DUOVENT [Suspect]
     Indication: DYSPNOEA
     Route: 055
     Dates: start: 20060101
  2. ATROVENT [Suspect]
     Indication: DYSPNOEA
     Dosage: .04MG
     Route: 055
     Dates: start: 20060101, end: 20060101
  3. MARAX [Concomitant]
     Indication: ASTHMA
  4. MARAX [Concomitant]
     Indication: BRONCHITIS

REACTIONS (6)
  - BLOOD PRESSURE INCREASED [None]
  - CARDIAC DISORDER [None]
  - DYSPNOEA [None]
  - OVERDOSE [None]
  - THERAPEUTIC RESPONSE DECREASED [None]
  - THROAT IRRITATION [None]
